FAERS Safety Report 23156126 (Version 2)
Quarter: 2023Q4

REPORT INFORMATION
  Report Type: Spontaneous
  Country: BG (occurrence: None)
  Receive Date: 20231107
  Receipt Date: 20231205
  Transmission Date: 20240109
  Serious: Yes (Hospitalization, Other)
  Sender: FDA-Public Use
  Company Number: 2023A248773

PATIENT
  Age: 74 Year
  Sex: Male

DRUGS (5)
  1. CALQUENCE [Suspect]
     Active Substance: ACALABRUTINIB
     Indication: Chronic lymphocytic leukaemia
     Route: 048
  2. EPLERENONE [Concomitant]
     Active Substance: EPLERENONE
     Dosage: UNKNOWN
  3. RAMIPRIL [Concomitant]
     Active Substance: RAMIPRIL
     Dosage: UNKNOWN
  4. FUROSEMIDE [Concomitant]
     Active Substance: FUROSEMIDE
     Dosage: UNKNOWN
  5. DABIGATRAN [Concomitant]
     Active Substance: DABIGATRAN
     Dosage: UNKNOWN

REACTIONS (4)
  - Syncope [Recovered/Resolved]
  - Dyspnoea [Unknown]
  - Gastritis erosive [Unknown]
  - Asthenia [Unknown]
